FAERS Safety Report 5481107-7 (Version None)
Quarter: 2007Q4

REPORT INFORMATION
  Report Type: 
  Country: None (occurrence: None)
  Receive Date: 20071003
  Receipt Date: 20070108
  Transmission Date: 20080405
  Serious: Yes (Hospitalization)
  Sender: FDA-Public Use
  Company Number: 6028883

PATIENT
  Age: 56 Year
  Sex: Male

DRUGS (4)
  1. CYCLOSPORINE [Suspect]
     Indication: IMMUNOSUPPRESSION
  2. FLUCONAZOLE [Suspect]
     Indication: PNEUMONIA
  3. EVEROLIMUS (EVEROLIMUS) [Suspect]
     Dosage: 3,00 MG (1,5 MG, 2 IN 1 D)
  4. CIPROFLOXACIN [Concomitant]

REACTIONS (2)
  - DRUG INTERACTION [None]
  - RENAL IMPAIRMENT [None]
